FAERS Safety Report 7400082-9 (Version None)
Quarter: 2011Q2

REPORT INFORMATION
  Report Type: 
  Country: None (occurrence: None)
  Receive Date: 20110407
  Receipt Date: 20100526
  Transmission Date: 20111010
  Serious: Yes (Other)
  Sender: FDA-Public Use
  Company Number: PHHY2010DE90684

PATIENT

DRUGS (1)
  1. EXTAVIA [Suspect]

REACTIONS (2)
  - RASH PUSTULAR [None]
  - WRIST FRACTURE [None]
